FAERS Safety Report 9912012 (Version 1)
Quarter: 2014Q1

REPORT INFORMATION
  Report Type: Spontaneous
  Country: US (occurrence: US)
  Receive Date: 20140219
  Receipt Date: 20140219
  Transmission Date: 20141002
  Serious: No
  Sender: FDA-Public Use
  Company Number: US-MYLANLABS-PF-2013279545

PATIENT
  Sex: Female

DRUGS (2)
  1. EPIPEN [Suspect]
     Dosage: 0.3 MG, UNK
     Route: 030
     Dates: start: 2009
  2. BENADRYL [Concomitant]

REACTIONS (3)
  - Feeling abnormal [Recovered/Resolved]
  - Flushing [Recovered/Resolved]
  - Nausea [Recovered/Resolved]
